FAERS Safety Report 9292007 (Version 2)
Quarter: 2017Q4

REPORT INFORMATION
  Report Type: Spontaneous
  Country: US (occurrence: US)
  Receive Date: 20130516
  Receipt Date: 20171130
  Transmission Date: 20180321
  Serious: No
  Sender: FDA-Public Use
  Company Number: US-PFIZER INC-2013148061

PATIENT
  Age: 58 Year
  Sex: Male
  Weight: 127 kg

DRUGS (2)
  1. XALKORI [Suspect]
     Active Substance: CRIZOTINIB
     Dosage: 250 MG TWICE DAILY
     Route: 048
     Dates: start: 2012
  2. XALKORI [Suspect]
     Active Substance: CRIZOTINIB
     Indication: NON-SMALL CELL LUNG CANCER
     Dosage: 250 MG TWICE DAILY
     Dates: start: 20111027

REACTIONS (4)
  - Oral mucosal blistering [Recovered/Resolved]
  - Peripheral swelling [Unknown]
  - Sleep apnoea syndrome [Unknown]
  - Tongue blistering [Recovered/Resolved]
